FAERS Safety Report 16784562 (Version 1)
Quarter: 2019Q3

REPORT INFORMATION
  Report Type: Report from Study
  Country: None (occurrence: GB)
  Receive Date: 20190909
  Receipt Date: 20190909
  Transmission Date: 20191005
  Serious: Yes (Other)
  Sender: FDA-Public Use
  Company Number: GB-ABBVIE-19K-167-2677193-00

PATIENT
  Age: 59 Year
  Sex: Female

DRUGS (1)
  1. HUMIRA [Suspect]
     Active Substance: ADALIMUMAB
     Indication: CROHN^S DISEASE
     Route: 058
     Dates: end: 20190106

REACTIONS (9)
  - Pneumonia [Unknown]
  - Pulmonary mycosis [Unknown]
  - Medical induction of coma [Unknown]
  - Lower respiratory tract infection [Not Recovered/Not Resolved]
  - Influenza [Unknown]
  - Bronchopulmonary aspergillosis allergic [Not Recovered/Not Resolved]
  - Hypersensitivity [Unknown]
  - Asthma [Not Recovered/Not Resolved]
  - Aspergillus infection [Unknown]

NARRATIVE: CASE EVENT DATE: 201901
